FAERS Safety Report 25090823 (Version 2)
Quarter: 2025Q1

REPORT INFORMATION
  Report Type: Spontaneous
  Country: US (occurrence: US)
  Receive Date: 20250318
  Receipt Date: 20250331
  Transmission Date: 20250409
  Serious: Yes (Other)
  Sender: CIPLA
  Company Number: US-CIPLA LTD.-2025US02749

PATIENT

DRUGS (1)
  1. RALOXIFENE [Suspect]
     Active Substance: RALOXIFENE
     Indication: Bone density abnormal
     Route: 065
     Dates: start: 202412

REACTIONS (8)
  - Paralysis [Unknown]
  - Movement disorder [Unknown]
  - Drug ineffective [Unknown]
  - Gait inability [Unknown]
  - Night sweats [Unknown]
  - Hyperhidrosis [Unknown]
  - Muscle spasms [Unknown]
  - Hot flush [Unknown]
